FAERS Safety Report 23393287 (Version 1)
Quarter: 2024Q1

REPORT INFORMATION
  Report Type: Spontaneous
  Country: FR (occurrence: None)
  Receive Date: 20240111
  Receipt Date: 20240111
  Transmission Date: 20240410
  Serious: Yes (Hospitalization)
  Sender: FDA-Public Use
  Company Number: 2024A007424

PATIENT
  Age: 88 Year
  Sex: Male
  Weight: 75 kg

DRUGS (12)
  1. OMEPRAZOLE [Suspect]
     Active Substance: OMEPRAZOLE
     Indication: Product used for unknown indication
     Route: 048
     Dates: start: 2021, end: 20231026
  2. SERTRALINE [Suspect]
     Active Substance: SERTRALINE HYDROCHLORIDE
     Indication: Depression
     Dosage: FOR ONE MONTH
     Route: 048
     Dates: start: 20230923, end: 20231026
  3. SERTRALINE [Suspect]
     Active Substance: SERTRALINE HYDROCHLORIDE
     Indication: Depression
     Dosage: FOR ONE MONTH
     Route: 048
  4. TITANOREINE [Concomitant]
     Active Substance: CARRAGEENAN\TITANIUM\ZINC
  5. ASPIRIN\CLOPIDOGREL [Concomitant]
     Active Substance: ASPIRIN\CLOPIDOGREL
  6. TAHOR [Concomitant]
     Active Substance: ATORVASTATIN CALCIUM
  7. TOVIAZ [Concomitant]
     Active Substance: FESOTERODINE FUMARATE
  8. ENTRESTO [Concomitant]
     Active Substance: SACUBITRIL\VALSARTAN
  9. BISCOE [Concomitant]
  10. POLYETHYLENE GLYCOL 4000 [Concomitant]
     Active Substance: POLYETHYLENE GLYCOL 4000
  11. FUROSEMIDE [Concomitant]
     Active Substance: FUROSEMIDE
  12. BROMAZEPAM [Concomitant]
     Active Substance: BROMAZEPAM

REACTIONS (1)
  - Inappropriate antidiuretic hormone secretion [Recovered/Resolved]
